FAERS Safety Report 4609661-5 (Version None)
Quarter: 2005Q1

REPORT INFORMATION
  Report Type: 
  Country: None (occurrence: None)
  Receive Date: 20050314
  Receipt Date: 20050302
  Transmission Date: 20050727
  Serious: Yes (Hospitalization)
  Sender: FDA-Public Use
  Company Number: 2005SE01076

PATIENT

DRUGS (3)
  1. SPIROCORT [Suspect]
     Dosage: 400 UG Q4H IH
     Route: 055
  2. SPIROCORT [Suspect]
     Dosage: 400 UG BID IH
     Route: 055
  3. BRICANYL [Concomitant]

REACTIONS (4)
  - ADRENAL DISORDER [None]
  - BLOOD GLUCOSE DECREASED [None]
  - DISSOCIATION [None]
  - LETHARGY [None]
